FAERS Safety Report 4359945-3 (Version None)
Quarter: 2004Q2

REPORT INFORMATION
  Report Type: 
  Country: None (occurrence: None)
  Receive Date: 20040513
  Receipt Date: 20040430
  Transmission Date: 20050107
  Serious: No
  Sender: FDA-Public Use
  Company Number: 2004AC00102

PATIENT
  Age: 48 Year
  Sex: Male

DRUGS (6)
  1. QUETIAPINE [Suspect]
     Indication: BIPOLAR DISORDER
     Dosage: 400 MG BID PO
     Route: 048
  2. QUETIAPINE [Suspect]
     Indication: SCHIZOAFFECTIVE DISORDER
     Dosage: 400 MG BID PO
     Route: 048
  3. HALOPERIDOL [Suspect]
     Indication: BIPOLAR DISORDER
     Dosage: 20 MG DAILY
  4. HALOPERIDOL [Suspect]
     Indication: SCHIZOAFFECTIVE DISORDER
     Dosage: 20 MG DAILY
  5. HALOPERIDOL [Suspect]
     Indication: BIPOLAR DISORDER
     Dosage: 5 MG BID
  6. HALOPERIDOL [Suspect]
     Indication: SCHIZOAFFECTIVE DISORDER
     Dosage: 5 MG BID

REACTIONS (7)
  - DIABETES MELLITUS [None]
  - DRUG EFFECT DECREASED [None]
  - METABOLIC ACIDOSIS [None]
  - PSYCHOTIC DISORDER [None]
  - TREATMENT NONCOMPLIANCE [None]
  - WEIGHT DECREASED [None]
  - WEIGHT INCREASED [None]
